FAERS Safety Report 23220496 (Version 2)
Quarter: 2024Q1

REPORT INFORMATION
  Report Type: Spontaneous
  Country: US (occurrence: US)
  Receive Date: 20231123
  Receipt Date: 20240102
  Transmission Date: 20240410
  Serious: No
  Sender: FDA-Public Use
  Company Number: US-AMGEN-USASP2023206651

PATIENT
  Age: 74 Year
  Sex: Female

DRUGS (1)
  1. REPATHA [Suspect]
     Active Substance: EVOLOCUMAB
     Indication: Hyperlipidaemia
     Dosage: 420 MILLIGRAM, QMO
     Route: 058

REACTIONS (10)
  - Rhinorrhoea [Unknown]
  - Sneezing [Unknown]
  - Cough [Unknown]
  - Flatulence [Unknown]
  - Gastrointestinal pain [Unknown]
  - Diarrhoea [Unknown]
  - Product storage error [Unknown]
  - Intercepted product administration error [Unknown]
  - Cough [Unknown]
  - Dry throat [Unknown]

NARRATIVE: CASE EVENT DATE: 20231226
